FAERS Safety Report 19102098 (Version 1)
Quarter: 2021Q2

REPORT INFORMATION
  Report Type: Other
  Country: US (occurrence: US)
  Receive Date: 20210407
  Receipt Date: 20210407
  Transmission Date: 20210717
  Serious: Yes (Hospitalization)
  Sender: FDA-Public Use
  Company Number: US-ROCHE-2800914

PATIENT
  Sex: Male

DRUGS (2)
  1. XELODA [Suspect]
     Active Substance: CAPECITABINE
     Indication: NEOPLASM MALIGNANT
     Dosage: TAKE 2 TABLET(S) BY MOUTH EVERY MORNING + TAKE 3 TABLET(S) BY MOUTH EVERY?EVENING ON DAYS 1?14 OF A
     Route: 048
  2. XELODA [Suspect]
     Active Substance: CAPECITABINE
     Indication: NEUROENDOCRINE CARCINOMA

REACTIONS (2)
  - Nephrolithiasis [Unknown]
  - Off label use [Unknown]
